FAERS Safety Report 21351285 (Version 1)
Quarter: 2022Q3

REPORT INFORMATION
  Report Type: Spontaneous
  Country: GR (occurrence: GR)
  Receive Date: 20220919
  Receipt Date: 20220919
  Transmission Date: 20221027
  Serious: Yes (Other)
  Sender: FDA-Public Use
  Company Number: None

PATIENT
  Age: 31 Year
  Sex: Female
  Weight: 50 kg

DRUGS (1)
  1. MEDROL [Suspect]
     Active Substance: METHYLPREDNISOLONE
     Indication: Chronic tonsillitis
     Dosage: 1 DF, 2X/DAY (ONE TABLET EVERY MORNING AND NIGHT FOR 2 DAYS . IN TOTAL SHE RECEIVED 3 TABS )
     Dates: start: 20210909, end: 20210910

REACTIONS (2)
  - Asthenia [Not Recovered/Not Resolved]
  - Erythema [Recovered/Resolved]

NARRATIVE: CASE EVENT DATE: 20210910
